FAERS Safety Report 11560545 (Version 1)
Quarter: 2015Q3

REPORT INFORMATION
  Report Type: Spontaneous
  Country: US (occurrence: US)
  Receive Date: 20150916
  Receipt Date: 20150916
  Transmission Date: 20151125
  Serious: No
  Sender: FDA-Public Use
  Company Number: US-ELI_LILLY_AND_COMPANY-US200809006814

PATIENT
  Age: 71 Year
  Sex: Female

DRUGS (4)
  1. FORTEO [Suspect]
     Active Substance: TERIPARATIDE
     Dates: start: 20080826
  2. HYDROCODONE [Concomitant]
     Active Substance: HYDROCODONE
  3. CORTICOSTEROIDS [Concomitant]
     Active Substance: CORTICOSTEROID NOS
  4. SKELAXIN [Concomitant]
     Active Substance: METAXALONE

REACTIONS (4)
  - Erythema [Recovered/Resolved]
  - Fear [Unknown]
  - Injection site erythema [Recovered/Resolved]
  - Pain [Not Recovered/Not Resolved]

NARRATIVE: CASE EVENT DATE: 2008
